FAERS Safety Report 21822541 (Version 11)
Quarter: 2023Q2

REPORT INFORMATION
  Report Type: Report from Study
  Country: US (occurrence: US)
  Receive Date: 20230105
  Receipt Date: 20230605
  Transmission Date: 20230722
  Serious: Yes (Other)
  Sender: FDA-Public Use
  Company Number: US-ABBVIE-4258213

PATIENT
  Age: 62 Year
  Sex: Male

DRUGS (6)
  1. IMBRUVICA [Suspect]
     Active Substance: IBRUTINIB
     Indication: Chronic lymphocytic leukaemia
     Dosage: LAST ADMIN DATE- DEC 2022
     Route: 048
     Dates: start: 20221220
  2. IMBRUVICA [Suspect]
     Active Substance: IBRUTINIB
     Indication: Chronic lymphocytic leukaemia
     Route: 048
     Dates: start: 202212, end: 202212
  3. IMBRUVICA [Suspect]
     Active Substance: IBRUTINIB
     Indication: Chronic lymphocytic leukaemia
     Dosage: LAST ADMIN DATE- DEC 2022
     Route: 048
     Dates: start: 20221220
  4. IMBRUVICA [Suspect]
     Active Substance: IBRUTINIB
     Indication: Chronic lymphocytic leukaemia
     Route: 048
     Dates: start: 20221220, end: 20230516
  5. IMBRUVICA [Suspect]
     Active Substance: IBRUTINIB
     Indication: Chronic lymphocytic leukaemia
     Dosage: LAST ADMIN DATE- DEC 2022
     Route: 048
     Dates: start: 20221214
  6. INSULIN NOS [Concomitant]
     Active Substance: INSULIN NOS
     Indication: Product used for unknown indication

REACTIONS (21)
  - Back injury [Unknown]
  - Pneumonia [Unknown]
  - White blood cell count increased [Recovered/Resolved]
  - Bronchitis [Unknown]
  - Muscle spasms [Recovered/Resolved]
  - Cardiac disorder [Unknown]
  - Blood glucose decreased [Unknown]
  - White blood cell count decreased [Recovered/Resolved]
  - White blood cell count decreased [Unknown]
  - Contusion [Not Recovered/Not Resolved]
  - Headache [Recovered/Resolved]
  - Nausea [Unknown]
  - Nausea [Recovered/Resolved]
  - Fatigue [Not Recovered/Not Resolved]
  - White blood cell count increased [Unknown]
  - Blood insulin decreased [Unknown]
  - Skin ulcer [Not Recovered/Not Resolved]
  - Investigation abnormal [Unknown]
  - Impaired healing [Unknown]
  - Unevaluable event [Unknown]
  - Muscle spasms [Not Recovered/Not Resolved]

NARRATIVE: CASE EVENT DATE: 20221201
